FAERS Safety Report 23564065 (Version 2)
Quarter: 2024Q1

REPORT INFORMATION
  Report Type: Spontaneous
  Country: FR (occurrence: FR)
  Receive Date: 20240226
  Receipt Date: 20240308
  Transmission Date: 20240410
  Serious: Yes (Hospitalization)
  Sender: FDA-Public Use
  Company Number: None

PATIENT
  Age: 79 Year
  Sex: Female
  Weight: 48 kg

DRUGS (2)
  1. RYDAPT [Suspect]
     Active Substance: MIDOSTAURIN
     Indication: Acute megakaryocytic leukaemia
     Dosage: 100 MG, Q12H
     Route: 048
     Dates: start: 20230629, end: 202310
  2. LEVOTHYROXINE [Concomitant]
     Active Substance: LEVOTHYROXINE\LEVOTHYROXINE SODIUM
     Indication: Product used for unknown indication
     Dosage: UNK
     Route: 065

REACTIONS (1)
  - Cardiac failure [Recovered/Resolved]

NARRATIVE: CASE EVENT DATE: 20231117
